FAERS Safety Report 7741831-X (Version None)
Quarter: 2011Q3

REPORT INFORMATION
  Report Type: 
  Country: None (occurrence: None)
  Receive Date: 20110906
  Receipt Date: 20110823
  Transmission Date: 20111222
  Serious: Yes (Other)
  Sender: FDA-Public Use
  Company Number: 2011MA009546

PATIENT
  Age: 37 Year
  Sex: Female

DRUGS (7)
  1. ALBUTEROL [Concomitant]
  2. IPRATROPIUM BROMIDE [Suspect]
     Indication: ASTHMA
  3. MONTELUKAST SODIUM [Suspect]
     Dosage: 10 MG;PO
     Route: 048
     Dates: start: 20070101
  4. ATROVENT [Concomitant]
  5. XOLAIR [Suspect]
     Indication: ASTHMA
     Dosage: 300 MG;QM;SC
     Route: 058
     Dates: start: 20091104, end: 20110504
  6. SERETIDE (NO PREF. NAME) [Suspect]
     Indication: ASTHMA
     Dates: start: 20050101
  7. CITALOPRAM HYDROBROMIDE [Concomitant]

REACTIONS (1)
  - TRANSIENT ISCHAEMIC ATTACK [None]
